FAERS Safety Report 8582556-0 (Version None)
Quarter: 2012Q3

REPORT INFORMATION
  Report Type: 
  Country: None (occurrence: None)
  Receive Date: 20120809
  Receipt Date: 20120802
  Transmission Date: 20120928
  Serious: Yes (Hospitalization)
  Sender: FDA-Public Use
  Company Number: FR-ROCHE-1097197

PATIENT
  Age: 80 Year
  Sex: Female

DRUGS (9)
  1. PROPRANOLOL [Concomitant]
  2. VALIUM [Suspect]
     Route: 048
     Dates: start: 20120205
  3. VALIUM [Suspect]
     Dates: start: 20120205
  4. RAMIPRIL [Concomitant]
  5. STABLON [Concomitant]
  6. VALIUM [Suspect]
     Dates: start: 20120206
  7. VALIUM [Suspect]
     Indication: AGITATION
     Route: 048
     Dates: start: 20120204
  8. DUPHALAC [Concomitant]
     Dosage: UNKNOWN DOSE
  9. BUMETANIDE [Concomitant]
     Dates: end: 20120204

REACTIONS (1)
  - ENCEPHALOPATHY [None]
